FAERS Safety Report 7506869-6 (Version None)
Quarter: 2011Q2

REPORT INFORMATION
  Report Type: 
  Country: None (occurrence: None)
  Receive Date: 20110526
  Receipt Date: 20110520
  Transmission Date: 20111010
  Serious: Yes (Hospitalization, Other)
  Sender: FDA-Public Use
  Company Number: B0721831A

PATIENT
  Age: 52 Year
  Sex: Female
  Weight: 60 kg

DRUGS (3)
  1. LITHIUM CARBONATE [Suspect]
     Indication: DEPRESSION
     Route: 048
     Dates: start: 20110424
  2. PAROXETINE HCL [Suspect]
     Indication: DEPRESSION
     Dosage: 20MG PER DAY
     Route: 048
     Dates: start: 20110407
  3. DIPIPERON [Suspect]
     Dosage: 20MG PER DAY
     Route: 048
     Dates: start: 20110428, end: 20110428

REACTIONS (6)
  - ORTHOSTATIC HYPOTENSION [None]
  - DRUG INTERACTION [None]
  - HYPERTENSIVE ENCEPHALOPATHY [None]
  - ALTERED STATE OF CONSCIOUSNESS [None]
  - CIRCULATORY COLLAPSE [None]
  - SINUS TACHYCARDIA [None]
